FAERS Safety Report 19715355 (Version 1)
Quarter: 2021Q3

REPORT INFORMATION
  Report Type: Spontaneous
  Country: CN (occurrence: CN)
  Receive Date: 20210818
  Receipt Date: 20210818
  Transmission Date: 20211014
  Serious: Yes (Other)
  Sender: FDA-Public Use
  Company Number: CN-PFIZER INC-202101015316

PATIENT
  Age: 32 Year
  Sex: Female
  Weight: 87 kg

DRUGS (4)
  1. CARBOPROST TROMETAMOL [Suspect]
     Active Substance: CARBOPROST TROMETHAMINE
     Indication: UTERINE HYPOTONUS
     Dosage: 250 UG, 2X/DAY
     Dates: start: 20210707, end: 20210707
  2. OXYTOCIN. [Suspect]
     Active Substance: OXYTOCIN
     Indication: UTERINE HYPOTONUS
     Dosage: 10  UNITS, 1X/DAY
     Route: 030
     Dates: start: 20210707, end: 20210707
  3. OXYTOCIN. [Suspect]
     Active Substance: OXYTOCIN
     Dosage: 30 UNITS, 1X/DAY
     Route: 041
     Dates: start: 20210707, end: 20210707
  4. CARBETOCIN [Suspect]
     Active Substance: CARBETOCIN
     Indication: UTERINE HYPOTONUS
     Dosage: 100 UG, 1X/DAY
     Route: 042
     Dates: start: 20210707, end: 20210707

REACTIONS (5)
  - Rash [Recovering/Resolving]
  - Erythema [Recovering/Resolving]
  - Product use issue [Unknown]
  - Pruritus [Recovering/Resolving]
  - Off label use [Unknown]

NARRATIVE: CASE EVENT DATE: 20210708
